FAERS Safety Report 15088411 (Version 1)
Quarter: 2018Q2

REPORT INFORMATION
  Report Type: Other
  Country: DE (occurrence: DE)
  Receive Date: 20180629
  Receipt Date: 20180629
  Transmission Date: 20180711
  Serious: No
  Sender: FDA-Public Use
  Company Number: DE-LUPIN PHARMACEUTICALS INC.-2018-00230

PATIENT
  Age: 66 Year
  Sex: Female
  Weight: 75 kg

DRUGS (10)
  1. SPIRONOLACTON [Concomitant]
     Active Substance: SPIRONOLACTONE
     Indication: PRODUCT USED FOR UNKNOWN INDICATION
     Dosage: 25 UNK, UNK
     Route: 048
     Dates: start: 20140124
  2. AMIODARON                          /00133101/ [Concomitant]
     Active Substance: AMIODARONE
     Indication: ARRHYTHMIA
     Dosage: 200 MG, UNK
     Route: 048
     Dates: start: 20140124
  3. CHOLESTAGEL [Suspect]
     Active Substance: COLESEVELAM HYDROCHLORIDE
     Indication: TYPE IIA HYPERLIPIDAEMIA
     Dosage: 2.5 G, QD
     Route: 048
     Dates: start: 20140124, end: 201407
  4. CHOLESTAGEL [Suspect]
     Active Substance: COLESEVELAM HYDROCHLORIDE
     Dosage: 2.5 G, UNK
     Route: 048
     Dates: start: 201503, end: 201606
  5. BELOC-ZOK COMP [Concomitant]
     Active Substance: HYDROCHLOROTHIAZIDE\METOPROLOL SUCCINATE
     Indication: ARRHYTHMIA
     Dosage: 190 UNK, UNK
     Route: 048
     Dates: start: 20140124
  6. BEZAFIBRAT [Suspect]
     Active Substance: BEZAFIBRATE
     Dosage: 400 MG, UNK
     Route: 048
     Dates: start: 201607, end: 201610
  7. ASPIRIN. [Concomitant]
     Active Substance: ASPIRIN
     Indication: ANTICOAGULANT THERAPY
     Dosage: 100 MG, UNK
     Route: 048
     Dates: start: 20140124
  8. SIMVASTATIN TABLETS [Suspect]
     Active Substance: SIMVASTATIN
     Indication: TYPE IIA HYPERLIPIDAEMIA
     Dosage: 20 MG, QD
     Route: 048
     Dates: start: 20140124, end: 2016
  9. BEZAFIBRAT [Suspect]
     Active Substance: BEZAFIBRATE
     Indication: TYPE IIA HYPERLIPIDAEMIA
     Dosage: UNK
     Route: 048
     Dates: start: 20140124, end: 201410
  10. PANTOPRAZOL                        /01263201/ [Concomitant]
     Active Substance: PANTOPRAZOLE
     Indication: PROPHYLAXIS
     Dosage: 40 MG, UNK
     Route: 048
     Dates: start: 20140124

REACTIONS (5)
  - Vomiting [Recovered/Resolved]
  - Abdominal pain [Recovered/Resolved]
  - Diarrhoea [Recovered/Resolved]
  - Myopathy [Recovered/Resolved]
  - Nausea [Recovered/Resolved]

NARRATIVE: CASE EVENT DATE: 20140416
